FAERS Safety Report 26065770 (Version 3)
Quarter: 2025Q4

REPORT INFORMATION
  Report Type: Report from Study
  Country: EG (occurrence: EG)
  Receive Date: 20251119
  Receipt Date: 20251224
  Transmission Date: 20260118
  Serious: Yes (Death)
  Sender: ABBVIE
  Company Number: EG-ABBVIE-6553435

PATIENT
  Age: 71 Year
  Sex: Female

DRUGS (2)
  1. VENCLEXTA [Suspect]
     Active Substance: VENETOCLAX
     Indication: Acute myeloid leukaemia
     Dosage: FORM STRENGTH 100MG
     Route: 048
     Dates: start: 202312, end: 202507
  2. VENCLEXTA [Suspect]
     Active Substance: VENETOCLAX
     Indication: Acute myeloid leukaemia
     Route: 048
     Dates: start: 20250819

REACTIONS (7)
  - Leukaemia [Fatal]
  - Mucormycosis [Fatal]
  - Immunodeficiency [Fatal]
  - Pneumonia [Fatal]
  - Haemorrhage [Fatal]
  - Unevaluable event [Fatal]
  - Lymphocyte count decreased [Fatal]

NARRATIVE: CASE EVENT DATE: 20250701
